FAERS Safety Report 6680115-8 (Version None)
Quarter: 2010Q2

REPORT INFORMATION
  Report Type: 
  Country: None (occurrence: None)
  Receive Date: 20100409
  Receipt Date: 20100329
  Transmission Date: 20101027
  Serious: Yes (Other)
  Sender: FDA-Public Use
  Company Number: 1000011470

PATIENT
  Sex: Male

DRUGS (2)
  1. ESCITALOPRAM OXALATE [Suspect]
     Dosage: ORAL,  20 MG (20 MG, 1 IN 1 D), ORAL
     Route: 048
     Dates: start: 20091212, end: 20100112
  2. ESCITALOPRAM OXALATE [Suspect]
     Dosage: ORAL,  20 MG (20 MG, 1 IN 1 D), ORAL
     Route: 048
     Dates: start: 20100113

REACTIONS (8)
  - AGITATION [None]
  - ANXIETY [None]
  - CRYING [None]
  - DEPRESSION [None]
  - DISEASE RECURRENCE [None]
  - DISTURBANCE IN ATTENTION [None]
  - DRUG INEFFECTIVE [None]
  - THINKING ABNORMAL [None]
